FAERS Safety Report 25269231 (Version 2)
Quarter: 2025Q4

REPORT INFORMATION
  Report Type: Spontaneous
  Country: US (occurrence: US)
  Receive Date: 20250505
  Receipt Date: 20251027
  Transmission Date: 20260118
  Serious: No
  Sender: ROCHE
  Company Number: US-ROCHE-10000274770

PATIENT
  Age: 10 Year
  Sex: Male
  Weight: 51.98 kg

DRUGS (1)
  1. HEMLIBRA [Suspect]
     Active Substance: EMICIZUMAB-KXWH
     Indication: Factor VIII deficiency
     Dosage: STRENGHT: 150MG/ML
     Route: 058
     Dates: start: 202410

REACTIONS (3)
  - Haemorrhage [Unknown]
  - Eye haemorrhage [Unknown]
  - Eye contusion [Unknown]

NARRATIVE: CASE EVENT DATE: 20251011
